FAERS Safety Report 6881632-8 (Version None)
Quarter: 2010Q3

REPORT INFORMATION
  Report Type: 
  Country: None (occurrence: None)
  Receive Date: 20100729
  Receipt Date: 20100720
  Transmission Date: 20110219
  Serious: No
  Sender: FDA-Public Use
  Company Number: US-BIOGENIDEC-2010BI025096

PATIENT
  Age: 41 Year
  Sex: Female

DRUGS (2)
  1. TYSABRI [Suspect]
     Indication: MULTIPLE SCLEROSIS
     Route: 042
     Dates: start: 20100204, end: 20100304
  2. TYSABRI [Suspect]
     Route: 042
     Dates: start: 20100623

REACTIONS (4)
  - LABORATORY TEST ABNORMAL [None]
  - MUSCULOSKELETAL DISORDER [None]
  - NERVOUSNESS [None]
  - TREMOR [None]
